FAERS Safety Report 9675635 (Version 1)
Quarter: 2013Q4

REPORT INFORMATION
  Report Type: Spontaneous
  Country: FR (occurrence: FR)
  Receive Date: 20131107
  Receipt Date: 20131107
  Transmission Date: 20140711
  Serious: Yes (Death, Other)
  Sender: FDA-Public Use
  Company Number: FR-CELGENEUS-056-21880-13104981

PATIENT
  Sex: 0

DRUGS (6)
  1. REVLIMID [Suspect]
     Indication: PLASMA CELL MYELOMA
     Route: 048
  2. REVLIMID [Suspect]
     Indication: MYELODYSPLASTIC SYNDROME
  3. REVLIMID [Suspect]
     Indication: LYMPHOMA
  4. REVLIMID [Suspect]
     Indication: AMYLOIDOSIS
  5. REVLIMID [Suspect]
     Indication: REFRACTORY CYTOPENIA WITH UNILINEAGE DYSPLASIA
  6. REVLIMID [Suspect]
     Indication: ACUTE MYELOID LEUKAEMIA

REACTIONS (50)
  - Gastrointestinal carcinoma [Unknown]
  - Ovarian cancer [Unknown]
  - Breast cancer [Unknown]
  - Prostate cancer [Unknown]
  - Haematological malignancy [Unknown]
  - Malignant melanoma [Unknown]
  - Skin cancer [Unknown]
  - Lung neoplasm malignant [Unknown]
  - Toxic epidermal necrolysis [Fatal]
  - Skin disorder [Unknown]
  - General symptom [Unknown]
  - Nervous system disorder [Unknown]
  - Gastrointestinal disorder [Unknown]
  - Renal disorder [Unknown]
  - Liver disorder [Unknown]
  - Mental disorder [Unknown]
  - Musculoskeletal disorder [Unknown]
  - Endocrine disorder [Unknown]
  - Malnutrition [Unknown]
  - Immune system disorder [Unknown]
  - Eye disorder [Unknown]
  - Ear disorder [Unknown]
  - Blood disorder [Unknown]
  - Respiratory disorder [Unknown]
  - Drug reaction with eosinophilia and systemic symptoms [Recovering/Resolving]
  - Acute generalised exanthematous pustulosis [Recovering/Resolving]
  - Pulmonary arterial hypertension [Unknown]
  - Electrocardiogram QT prolonged [Unknown]
  - Cardiomyopathy [Unknown]
  - Atrioventricular block [Unknown]
  - Acute coronary syndrome [Unknown]
  - Supraventricular extrasystoles [Unknown]
  - Ventricular arrhythmia [Unknown]
  - Thrombocytopenia [Unknown]
  - Agranulocytosis [Unknown]
  - Pancytopenia [Unknown]
  - Anaemia [Unknown]
  - Pulmonary embolism [Unknown]
  - Deep vein thrombosis [Unknown]
  - Neuropathy peripheral [Unknown]
  - Infection [Unknown]
  - Rash [Unknown]
  - Pruritus [Unknown]
  - Respiratory distress [Unknown]
  - Lung infection [Unknown]
  - Cardiac failure [Unknown]
  - Atrial flutter [Unknown]
  - Myocardial infarction [Unknown]
  - Cardiac failure [Unknown]
  - Ventricular tachycardia [Unknown]
